FAERS Safety Report 10100986 (Version 2)
Quarter: 2014Q2

REPORT INFORMATION
  Report Type: Spontaneous
  Country: FR (occurrence: FR)
  Receive Date: 20140424
  Receipt Date: 20140424
  Transmission Date: 20141212
  Serious: Yes (Other)
  Sender: FDA-Public Use
  Company Number: FR-PFIZER INC-2014093569

PATIENT
  Age: 40 Year
  Sex: Female

DRUGS (2)
  1. XALKORI [Suspect]
     Indication: ADENOCARCINOMA
     Dosage: 250 MG, 2X/DAY
     Dates: start: 20131202, end: 20140327
  2. EFFERALGAN [Concomitant]
     Indication: PAIN
     Dosage: 1 G, 2X/DAY TO 3X/DAY
     Route: 048

REACTIONS (3)
  - Neutropenia [Recovered/Resolved]
  - Hepatocellular injury [Recovered/Resolved]
  - Thrombocytopenia [Recovered/Resolved]
